FAERS Safety Report 17335333 (Version 1)
Quarter: 2020Q1

REPORT INFORMATION
  Report Type: Spontaneous
  Country: FR (occurrence: FR)
  Receive Date: 20200128
  Receipt Date: 20200128
  Transmission Date: 20200409
  Serious: Yes (Death)
  Sender: FDA-Public Use
  Company Number: FR-ROCHE-2535488

PATIENT
  Age: 63 Year
  Sex: Female

DRUGS (1)
  1. XELODA [Suspect]
     Active Substance: CAPECITABINE
     Indication: NEOPLASM MALIGNANT
     Route: 042
     Dates: start: 201911

REACTIONS (3)
  - Colitis [Fatal]
  - Septic shock [Fatal]
  - Pancytopenia [Fatal]

NARRATIVE: CASE EVENT DATE: 20191211
